FAERS Safety Report 9286090 (Version 1)
Quarter: 2013Q2

REPORT INFORMATION
  Report Type: Spontaneous
  Country: US (occurrence: US)
  Receive Date: 20130513
  Receipt Date: 20130513
  Transmission Date: 20140414
  Serious: Yes (Hospitalization, Other)
  Sender: FDA-Public Use
  Company Number: US-TEVA-403822USA

PATIENT
  Age: 64 Year
  Sex: Male

DRUGS (1)
  1. PROPOFOL [Suspect]
     Indication: SEDATIVE THERAPY
     Route: 040

REACTIONS (2)
  - Atrioventricular block complete [Recovering/Resolving]
  - Cardiogenic shock [Recovering/Resolving]
